FAERS Safety Report 11538320 (Version 3)
Quarter: 2015Q4

REPORT INFORMATION
  Report Type: Spontaneous
  Country: JP (occurrence: JP)
  Receive Date: 20150922
  Receipt Date: 20151021
  Transmission Date: 20160304
  Serious: Yes (Hospitalization, Other)
  Sender: FDA-Public Use
  Company Number: JP-PFIZER INC-2015312707

PATIENT
  Age: 40 Year
  Sex: Male

DRUGS (4)
  1. MYCOBUTIN [Suspect]
     Active Substance: RIFABUTIN
     Indication: TUBERCULOSIS
     Dosage: UNK
     Route: 048
     Dates: end: 20150914
  2. ETHAMBUTOL [Concomitant]
     Active Substance: ETHAMBUTOL HYDROCHLORIDE
     Indication: TUBERCULOSIS
     Dosage: UNK
     Route: 065
  3. ISONIAZID. [Concomitant]
     Active Substance: ISONIAZID
     Indication: TUBERCULOSIS
     Dosage: UNK
  4. CLARITHROMYCIN. [Concomitant]
     Active Substance: CLARITHROMYCIN
     Indication: TUBERCULOSIS
     Dosage: UNK

REACTIONS (6)
  - Depressed level of consciousness [Unknown]
  - Decreased appetite [Unknown]
  - Fall [Unknown]
  - Subdural haematoma [Not Recovered/Not Resolved]
  - Feeding disorder [Unknown]
  - Cerebral infarction [Unknown]

NARRATIVE: CASE EVENT DATE: 201508
